FAERS Safety Report 14436023 (Version 1)
Quarter: 2018Q1

REPORT INFORMATION
  Report Type: Report from Study
  Country: CN (occurrence: CN)
  Receive Date: 20180125
  Receipt Date: 20180125
  Transmission Date: 20180509
  Serious: Yes (Other)
  Sender: FDA-Public Use
  Company Number: CN-ROCHE-2057560

PATIENT

DRUGS (2)
  1. CAPECITABINE. [Suspect]
     Active Substance: CAPECITABINE
     Indication: GASTRIC CANCER
     Dosage: IN THE MORING AND EVENING; D1-D 14 IN 3 WEEKS AS 1 CYCLE
     Route: 048
  2. OXALIPLATIN. [Suspect]
     Active Substance: OXALIPLATIN
     Indication: GASTRIC CANCER
     Dosage: INTRAVENOUS DRIP FOR 2 HOURS ON DAY1
     Route: 041

REACTIONS (11)
  - Hepatic function abnormal [Unknown]
  - Nausea [Unknown]
  - Renal impairment [Unknown]
  - Vomiting [Unknown]
  - Neurotoxicity [Unknown]
  - Haemoglobin decreased [Unknown]
  - Stomatitis [Unknown]
  - Palmar-plantar erythrodysaesthesia syndrome [Unknown]
  - Thrombocytopenia [Unknown]
  - Leukopenia [Unknown]
  - Diarrhoea [Unknown]
